FAERS Safety Report 8935508 (Version 1)
Quarter: 2012Q4

REPORT INFORMATION
  Report Type: Spontaneous
  Country: US (occurrence: None)
  Receive Date: 20121128
  Receipt Date: 20121128
  Transmission Date: 20130627
  Serious: Yes (Life-Threatening)
  Sender: FDA-Public Use
  Company Number: None

PATIENT
  Age: 62 Year
  Sex: Male
  Weight: 87.09 kg

DRUGS (4)
  1. BYETTA 10MCG AMYLIN [Suspect]
     Indication: TYPE II DIABETES MELLITUS
     Dosage: 10mcg bid before meals sq
     Route: 058
     Dates: start: 20070101, end: 20121012
  2. METFORMIN [Concomitant]
  3. JANUVIA [Concomitant]
  4. SIMVASTATIN [Concomitant]

REACTIONS (2)
  - Pancreatic carcinoma [None]
  - Metastases to liver [None]
